FAERS Safety Report 10714909 (Version 1)
Quarter: 2015Q1

REPORT INFORMATION
  Report Type: Spontaneous
  Country: US (occurrence: US)
  Receive Date: 20150115
  Receipt Date: 20150115
  Transmission Date: 20150721
  Serious: No
  Sender: FDA-Public Use
  Company Number: US-009507513-1501USA004818

PATIENT
  Sex: Male
  Weight: 12.25 kg

DRUGS (1)
  1. CLARITIN [Suspect]
     Active Substance: LORATADINE
     Indication: HYPERSENSITIVITY
     Dosage: 5 MG, QD
     Route: 048
     Dates: start: 2012

REACTIONS (3)
  - Drug administered to patient of inappropriate age [Unknown]
  - Product use issue [Unknown]
  - Product container issue [Unknown]

NARRATIVE: CASE EVENT DATE: 2012
